FAERS Safety Report 4800341-X (Version None)
Quarter: 2005Q4

REPORT INFORMATION
  Report Type: 
  Country: None (occurrence: None)
  Receive Date: 20051013
  Receipt Date: 20051004
  Transmission Date: 20060501
  Serious: Yes (Disabling, Other)
  Sender: FDA-Public Use
  Company Number: 2004-11-0992

PATIENT
  Age: 39 Year
  Sex: Female
  Weight: 80 kg

DRUGS (4)
  1. BETAMETHASONE [Suspect]
     Indication: SINUS DISORDER
     Dosage: SEE IMAGE
     Dates: start: 20051010, end: 20051112
  2. GENTAMICIN SULFATE [Suspect]
     Indication: SINUS DISORDER
     Dosage: INTRANASAL
     Route: 045
     Dates: start: 20031104, end: 20031112
  3. CEFUROXIME AXETIL [Concomitant]
  4. PIVALONE NASAL SPRAY [Concomitant]

REACTIONS (5)
  - ABASIA [None]
  - BONE DISORDER [None]
  - BONE INFARCTION [None]
  - OSTEONECROSIS [None]
  - SINUS HEADACHE [None]
